FAERS Safety Report 20467642 (Version 2)
Quarter: 2022Q4

REPORT INFORMATION
  Report Type: Spontaneous
  Country: US (occurrence: US)
  Receive Date: 20220214
  Receipt Date: 20221117
  Transmission Date: 20230113
  Serious: No
  Sender: FDA-Public Use
  Company Number: US-GILEAD-2022-0569212

PATIENT
  Age: 69 Year
  Sex: Male
  Weight: 78.005 kg

DRUGS (98)
  1. TRUVADA [Suspect]
     Active Substance: EMTRICITABINE\TENOFOVIR DISOPROXIL FUMARATE
     Indication: HIV infection
     Dosage: UNK
     Route: 048
     Dates: start: 2007
  2. TRUVADA [Suspect]
     Active Substance: EMTRICITABINE\TENOFOVIR DISOPROXIL FUMARATE
     Dosage: UNK
     Route: 065
     Dates: start: 2005, end: 201607
  3. COMPLERA [Suspect]
     Active Substance: EMTRICITABINE\RILPIVIRINE HYDROCHLORIDE\TENOFOVIR DISOPROXIL FUMARATE
     Indication: HIV infection
     Dosage: UNK
     Route: 065
     Dates: start: 201305, end: 201310
  4. VIREAD [Suspect]
     Active Substance: TENOFOVIR DISOPROXIL FUMARATE
     Indication: HIV infection
     Dosage: UNK
     Route: 065
     Dates: start: 200205, end: 2005
  5. VIREAD [Suspect]
     Active Substance: TENOFOVIR DISOPROXIL FUMARATE
     Dosage: UNK
     Route: 065
     Dates: start: 200205, end: 2006
  6. BIKTARVY [Concomitant]
     Active Substance: BICTEGRAVIR SODIUM\EMTRICITABINE\TENOFOVIR ALAFENAMIDE FUMARATE
  7. DESCOVY [Concomitant]
     Active Substance: EMTRICITABINE\TENOFOVIR ALAFENAMIDE FUMARATE
  8. ODEFSEY [Concomitant]
     Active Substance: EMTRICITABINE\RILPIVIRINE HYDROCHLORIDE\TENOFOVIR ALAFENAMIDE FUMARATE
  9. EPIVIR [Concomitant]
     Active Substance: LAMIVUDINE
  10. REYATAZ [Concomitant]
     Active Substance: ATAZANAVIR SULFATE
  11. TIVICAY [Concomitant]
     Active Substance: DOLUTEGRAVIR SODIUM
  12. VIRACEPT [Concomitant]
     Active Substance: NELFINAVIR MESYLATE
  13. VIRAMUNE [Concomitant]
     Active Substance: NEVIRAPINE
  14. ZERIT [Concomitant]
     Active Substance: STAVUDINE
  15. ATORVASTATIN [Concomitant]
     Active Substance: ATORVASTATIN
  16. GABAPENTIN [Concomitant]
     Active Substance: GABAPENTIN
  17. VICTOZA [Concomitant]
     Active Substance: LIRAGLUTIDE
  18. METFORMIN [Concomitant]
     Active Substance: METFORMIN HYDROCHLORIDE
  19. NOVOLOG [Concomitant]
     Active Substance: INSULIN ASPART
  20. TERBUTALINE [Concomitant]
     Active Substance: TERBUTALINE
  21. HYDROCHLOROTHIAZIDE [Concomitant]
     Active Substance: HYDROCHLOROTHIAZIDE
  22. CETIRIZINE [Concomitant]
     Active Substance: CETIRIZINE HYDROCHLORIDE
  23. LISINOPRIL [Concomitant]
     Active Substance: LISINOPRIL
  24. DULOXETINE [Concomitant]
     Active Substance: DULOXETINE
  25. CLOPIDOGREL [Concomitant]
     Active Substance: CLOPIDOGREL BISULFATE
  26. METOPROLOL [Concomitant]
     Active Substance: METOPROLOL
  27. AMMONIUM LACTATE [Concomitant]
     Active Substance: AMMONIUM LACTATE
  28. HYDROXYZINE [Concomitant]
     Active Substance: HYDROXYZINE HYDROCHLORIDE
  29. CEPHALEXIN [Concomitant]
     Active Substance: CEPHALEXIN
  30. MUPIROCIN [Concomitant]
     Active Substance: MUPIROCIN
  31. WARFARIN [Concomitant]
     Active Substance: WARFARIN
  32. ENOXAPARIN [Concomitant]
     Active Substance: ENOXAPARIN
  33. AMIODARONE [Concomitant]
     Active Substance: AMIODARONE
  34. JARDIANCE [Concomitant]
     Active Substance: EMPAGLIFLOZIN
  35. TRULICITY [Concomitant]
     Active Substance: DULAGLUTIDE
  36. PREGABALIN [Concomitant]
     Active Substance: PREGABALIN
  37. TRIAMCINOLONE [Concomitant]
     Active Substance: TRIAMCINOLONE
  38. CLOTRIMAZOLE [Concomitant]
     Active Substance: CLOTRIMAZOLE
  39. MELATONIN [Concomitant]
     Active Substance: MELATONIN
  40. LIDOCAINE [Concomitant]
     Active Substance: LIDOCAINE
  41. TRAMADOL [Concomitant]
     Active Substance: TRAMADOL
  42. OXYCODONE [Concomitant]
     Active Substance: OXYCODONE
  43. ASPIRIN [Concomitant]
     Active Substance: ASPIRIN
  44. VIRTUSSIN AC [Concomitant]
     Active Substance: CODEINE PHOSPHATE\GUAIFENESIN
  45. CILOSTAZOL [Concomitant]
     Active Substance: CILOSTAZOL
  46. NAPROXEN [Concomitant]
     Active Substance: NAPROXEN
  47. LORATADINE [Concomitant]
     Active Substance: LORATADINE
  48. CLOBETASOL [Concomitant]
     Active Substance: CLOBETASOL
  49. CYCLOBENZAPRINE [Concomitant]
     Active Substance: CYCLOBENZAPRINE
  50. IBUPROFEN [Concomitant]
     Active Substance: IBUPROFEN
  51. KETOCONAZOLE [Concomitant]
     Active Substance: KETOCONAZOLE
  52. AMLODIPINE [Concomitant]
     Active Substance: AMLODIPINE BESYLATE
  53. LEVEMIR [Concomitant]
     Active Substance: INSULIN DETEMIR
  54. OSELTAMIVIR [Concomitant]
     Active Substance: OSELTAMIVIR
  55. CEFADROXIL [Concomitant]
     Active Substance: CEFADROXIL
  56. CARVEDILOL [Concomitant]
     Active Substance: CARVEDILOL
  57. CEFUROXIME [Concomitant]
     Active Substance: CEFUROXIME
  58. DOXYCYCLINE [Concomitant]
     Active Substance: DOXYCYCLINE
  59. BANOPHEN [Concomitant]
     Active Substance: DIPHENHYDRAMINE HYDROCHLORIDE
  60. CHLORHEXIDINE [Concomitant]
     Active Substance: CHLORHEXIDINE
  61. JANUMET [Concomitant]
     Active Substance: METFORMIN HYDROCHLORIDE\SITAGLIPTIN PHOSPHATE
  62. AMOXICILLIN [Concomitant]
     Active Substance: AMOXICILLIN
  63. HUMALOG [Concomitant]
     Active Substance: INSULIN LISPRO
  64. TIZANIDINE [Concomitant]
     Active Substance: TIZANIDINE
  65. DILTIAZEM [Concomitant]
     Active Substance: DILTIAZEM
  66. SOVALDI [Concomitant]
     Active Substance: SOFOSBUVIR
  67. OLYSIO [Concomitant]
     Active Substance: SIMEPREVIR
  68. TAMSULOSIN [Concomitant]
     Active Substance: TAMSULOSIN
  69. FARXIGA [Concomitant]
     Active Substance: DAPAGLIFLOZIN PROPANEDIOL
  70. GLYBURIDE [Concomitant]
     Active Substance: GLYBURIDE
  71. INVOKANA [Concomitant]
     Active Substance: CANAGLIFLOZIN
  72. NEXIUM I.V. [Concomitant]
     Active Substance: ESOMEPRAZOLE SODIUM
  73. ONDANSETRON [Concomitant]
     Active Substance: ONDANSETRON
  74. PROVENTIL [Concomitant]
     Active Substance: ALBUTEROL
  75. ACIPHEX [Concomitant]
     Active Substance: RABEPRAZOLE SODIUM
  76. FLUTICASONE PROPIONATE [Concomitant]
     Active Substance: FLUTICASONE PROPIONATE
  77. FUROSEMIDE [Concomitant]
     Active Substance: FUROSEMIDE
  78. POTASSIUM CHLORIDE [Concomitant]
     Active Substance: POTASSIUM CHLORIDE
  79. JANUVIA [Concomitant]
     Active Substance: SITAGLIPTIN PHOSPHATE
  80. SOLARAZE [Concomitant]
     Active Substance: DICLOFENAC SODIUM
  81. PROCHLORPERAZINE [Concomitant]
     Active Substance: PROCHLORPERAZINE
  82. MELOXICAM [Concomitant]
     Active Substance: MELOXICAM
  83. AVELOX [Concomitant]
     Active Substance: MOXIFLOXACIN HYDROCHLORIDE
  84. DRONABINOL [Concomitant]
     Active Substance: DRONABINOL
  85. CLARITHROMYCIN [Concomitant]
     Active Substance: CLARITHROMYCIN
  86. LANSOPRAZOLE [Concomitant]
     Active Substance: LANSOPRAZOLE
  87. MICRONASE [Concomitant]
     Active Substance: GLYBURIDE
  88. METHADONE [Concomitant]
     Active Substance: METHADONE HYDROCHLORIDE
  89. RANITIDINE [Concomitant]
     Active Substance: RANITIDINE
  90. LOPERAMIDE HYDROCHLORIDE [Concomitant]
     Active Substance: LOPERAMIDE HYDROCHLORIDE
  91. MUCINEX [Concomitant]
     Active Substance: GUAIFENESIN
  92. LANTUS [Concomitant]
     Active Substance: INSULIN GLARGINE
  93. AVANDIA [Concomitant]
     Active Substance: ROSIGLITAZONE MALEATE
  94. VALACYCLOVIR HYDROCHLORIDE [Concomitant]
     Active Substance: VALACYCLOVIR HYDROCHLORIDE
  95. AZELASTINE [Concomitant]
     Active Substance: AZELASTINE
  96. CANAGLIFLOZIN [Concomitant]
     Active Substance: CANAGLIFLOZIN
  97. VITAMINS [Concomitant]
     Active Substance: VITAMINS
  98. DICLOFENAC SODIUM [Concomitant]
     Active Substance: DICLOFENAC SODIUM

REACTIONS (8)
  - Bone demineralisation [Unknown]
  - Bone density decreased [Not Recovered/Not Resolved]
  - Anxiety [Not Recovered/Not Resolved]
  - Emotional distress [Not Recovered/Not Resolved]
  - Pain [Not Recovered/Not Resolved]
  - Anhedonia [Not Recovered/Not Resolved]
  - Bone pain [Not Recovered/Not Resolved]
  - Gait disturbance [Not Recovered/Not Resolved]
